FAERS Safety Report 12165545 (Version 1)
Quarter: 2016Q1

REPORT INFORMATION
  Report Type: Spontaneous
  Country: US (occurrence: US)
  Receive Date: 20160309
  Receipt Date: 20160309
  Transmission Date: 20160526
  Serious: No
  Sender: FDA-Public Use
  Company Number: US-SHIRE-US-000962

PATIENT
  Age: 69 Year
  Sex: Female

DRUGS (26)
  1. PROBIOTICS [Concomitant]
     Active Substance: PROBIOTICS NOS
     Indication: PROBIOTIC THERAPY
     Dosage: STREN/VOLUM: 1 - 2 TABLETS|FREQU: ONCE A DAY
  2. RELPAX [Concomitant]
     Active Substance: ELETRIPTAN HYDROBROMIDE
     Indication: MIGRAINE
     Dosage: STREN/VOLUM: 40 MG|FREQU: AS NEEDED
  3. VITAMIN E [Concomitant]
     Active Substance: .ALPHA.-TOCOPHEROL
     Indication: VITAMIN SUPPLEMENTATION
     Dosage: STREN/VOLUM: 400 IU|FREQU: ONCE A DAY
  4. GATTEX [Suspect]
     Active Substance: TEDUGLUTIDE\WATER
     Indication: SHORT-BOWEL SYNDROME
     Dosage: STREN/VOLUM: 0.24 ML|FREQU: ONCE A DAY
     Route: 058
     Dates: start: 20140317
  5. L-GLUTAMINE POWDER [Concomitant]
     Indication: VITAMIN SUPPLEMENTATION
     Dosage: STREN/VOLUM: 4 GRAMS|FREQU: TWICE A DAY (POWDER)
  6. PREDNISONE. [Concomitant]
     Active Substance: PREDNISONE
     Indication: CROHN^S DISEASE
     Dosage: STREN/VOLUM: 1000 MCG|FREQU: EVERY 2 WEEKS
  7. SODIUM CHLORIDE. [Concomitant]
     Active Substance: SODIUM CHLORIDE
     Indication: SHORT-BOWEL SYNDROME
     Dosage: STREN/VOLUM: 1 INFUSION|FREQU: THREE TIMES A WEEK
  8. BONIVA INJECTION [Concomitant]
     Indication: OSTEOPOROSIS
     Dosage: STREN/VOLUM: 1 INJECTION|FREQU: EVERY 3 MONTHS
  9. CIMZIA [Concomitant]
     Active Substance: CERTOLIZUMAB PEGOL
     Indication: CROHN^S DISEASE
     Dosage: STREN/VOLUM: 400 MG|FREQU: EVERY 4 WEEKS
  10. BIEST [Concomitant]
     Indication: HORMONE REPLACEMENT THERAPY
     Dosage: STREN/VOLUM: 25 MG|FREQU: ONCE A DAY
  11. LUTEIN [Concomitant]
     Active Substance: LUTEIN
     Indication: VITAMIN SUPPLEMENTATION
     Dosage: STREN/VOLUM: 20 MG|FREQU: ONCE A DAY
  12. SODIUM CHLORIDE. [Concomitant]
     Active Substance: SODIUM CHLORIDE
     Indication: CROHN^S DISEASE
     Dosage: STREN/VOLUM: 1 INFUSION|FREQU: THREE TIMES A WEEK
  13. TPN [Concomitant]
     Active Substance: AMINO ACIDS\DEXTROSE\ELECTROLYTES NOS\SOYBEAN OIL
     Indication: NUTRITIONAL SUPPLEMENTATION
     Dosage: STREN/VOLUM: 1500 ML|FREQU: FOUR TIMES A WEEK OVER 12 HRS/DAY
  14. VENOFER- IRON INFUSION [Concomitant]
     Indication: SHORT-BOWEL SYNDROME
     Dosage: STREN/VOLUM: 1 INFUSION|FREQU: EVERY 4 WEEKS
  15. CYANOCOBALAMIN (B-12) INJECTION [Concomitant]
     Indication: CROHN^S DISEASE
     Dosage: STREN/VOLUM: 1000 MCG|FREQU: EVERY 2 WEEKS
  16. VITAMIN A [Concomitant]
     Active Substance: VITAMIN A
     Indication: VITAMIN SUPPLEMENTATION
     Dosage: STREN/VOLUM: 25,000 IU|FREQU: ONCE A DAY
  17. DENAVIR [Concomitant]
     Active Substance: PENCICLOVIR
     Indication: ORAL HERPES
     Dosage: FREQU: AS NEEDED
  18. CYANOCOBALAMIN (B-12) INJECTION [Concomitant]
     Indication: SHORT-BOWEL SYNDROME
     Dosage: STREN/VOLUM: 1000 MCG|FREQU: EVERY 2 WEEKS
  19. D -3 [Concomitant]
     Indication: VITAMIN SUPPLEMENTATION
     Dosage: STREN/VOLUM: 10,000   IU|FREQU: ONCE A DAY
  20. TESTOSTERONE. [Concomitant]
     Active Substance: TESTOSTERONE
     Indication: HORMONE REPLACEMENT THERAPY
     Dosage: STREN/VOLUM: .75 MG|FREQU: ONCE A DAY
  21. MAGNESIUM INFUSION [Concomitant]
     Indication: SHORT-BOWEL SYNDROME
     Dosage: STREN/VOLUM: 4 MG|FREQU: EVERY 4 WEEKS
  22. PROGESTERONE. [Concomitant]
     Active Substance: PROGESTERONE
     Indication: HORMONE REPLACEMENT THERAPY
     Dosage: STREN/VOLUM: 75 MG|FREQU: ONCE A DAY
  23. DHEA [Concomitant]
     Active Substance: PRASTERONE
     Indication: PROPHYLAXIS
     Dosage: STREN/VOLUM: 5 MG|FREQU: ONCE A DAY
  24. PREDNISONE. [Concomitant]
     Active Substance: PREDNISONE
     Indication: SHORT-BOWEL SYNDROME
     Dosage: STREN/VOLUM: 1000 MCG|FREQU: EVERY 2 WEEKS
  25. MAGNESIUM INFUSION [Concomitant]
     Indication: MINERAL SUPPLEMENTATION
     Dosage: STREN/VOLUM: 4 MG|FREQU: EVERY 4 WEEKS
  26. OMEGA CO3 [Concomitant]
     Indication: VITAMIN SUPPLEMENTATION
     Dosage: STREN/VOLUM: 1 GRAM|FREQU: ONCE A DAY

REACTIONS (12)
  - Gastrointestinal pain [Not Recovered/Not Resolved]
  - Influenza like illness [Not Recovered/Not Resolved]
  - Insomnia [Not Recovered/Not Resolved]
  - Oral herpes [Recovered/Resolved]
  - Feeling abnormal [Not Recovered/Not Resolved]
  - Headache [Not Recovered/Not Resolved]
  - Rhinorrhoea [Not Recovered/Not Resolved]
  - Diarrhoea [Recovered/Resolved]
  - Nasopharyngitis [Not Recovered/Not Resolved]
  - Cough [Not Recovered/Not Resolved]
  - Fatigue [Not Recovered/Not Resolved]
  - Abdominal distension [Recovered/Resolved]

NARRATIVE: CASE EVENT DATE: 201403
